FAERS Safety Report 6850235-3 (Version None)
Quarter: 2010Q3

REPORT INFORMATION
  Report Type: 
  Country: None (occurrence: None)
  Receive Date: 20100716
  Receipt Date: 20071014
  Transmission Date: 20110219
  Serious: No
  Sender: FDA-Public Use
  Company Number: US-PFIZER INC-2007087019

PATIENT
  Sex: Female
  Weight: 98 kg

DRUGS (8)
  1. CHANTIX [Suspect]
     Indication: SMOKING CESSATION THERAPY
     Route: 048
     Dates: start: 20070613
  2. PREMARIN [Concomitant]
  3. TRICOR [Concomitant]
  4. PROTONIX [Concomitant]
     Indication: DYSPEPSIA
  5. CENTRUM SILVER [Concomitant]
  6. VITAMIN C [Concomitant]
  7. ACETYLSALICYLIC ACID [Concomitant]
  8. FUROSEMIDE [Concomitant]
     Indication: OEDEMA PERIPHERAL

REACTIONS (2)
  - ERUCTATION [None]
  - NAUSEA [None]
